FAERS Safety Report 5646545-8 (Version None)
Quarter: 2008Q1

REPORT INFORMATION
  Report Type: 
  Country: None (occurrence: None)
  Receive Date: 20080227
  Receipt Date: 20080214
  Transmission Date: 20080703
  Serious: Yes (Hospitalization)
  Sender: FDA-Public Use
  Company Number: 2008-172169-NL

PATIENT
  Age: 29 Year
  Sex: Male

DRUGS (23)
  1. MIRTAZAPINE [Suspect]
     Indication: DEPRESSION
     Dosage: 30 MG  ORAL
     Route: 048
     Dates: start: 20040922, end: 20041001
  2. METHOTREXATE [Suspect]
     Indication: POLYARTHRITIS
     Dosage: 15 MG/30 MG/100 MG  ORAL
     Route: 048
     Dates: start: 20040903, end: 20040919
  3. METHOTREXATE [Suspect]
     Indication: POLYARTHRITIS
     Dosage: 15 MG/30 MG/100 MG  ORAL
     Route: 048
     Dates: start: 20040924, end: 20040926
  4. METHOTREXATE [Suspect]
     Indication: POLYARTHRITIS
     Dosage: 15 MG/30 MG/100 MG  ORAL
     Route: 048
     Dates: start: 20040929, end: 20041001
  5. OMEPRAZOLE [Concomitant]
  6. LORAZEPAM [Concomitant]
  7. OXAZEPAM [Concomitant]
  8. ASPIRIN [Concomitant]
  9. FLUOCORTOLONE [Concomitant]
  10. PROPRANOLOL HYDROCHLORIDE [Concomitant]
  11. AUGMENTIN '125' [Concomitant]
  12. OXYCODONE HCL [Concomitant]
  13. ASCORBIC ACID [Concomitant]
  14. HEPARIN FRACTION, SODIUM SALT [Concomitant]
  15. NITRENDIPINE [Concomitant]
  16. CAPTOPRIL [Concomitant]
  17. IBUPROFEN [Concomitant]
  18. METAMIZOLE SODIUM MONOHYDRATE [Concomitant]
  19. SUCRALFATE [Concomitant]
  20. DIMETINDENE MALEATE [Concomitant]
  21. CIPROFLOXACIN HYDROCHLORIDE [Concomitant]
  22. LACTULOSE [Concomitant]
  23. MAGALDRATE [Concomitant]

REACTIONS (4)
  - OVERDOSE [None]
  - PANCYTOPENIA [None]
  - STEVENS-JOHNSON SYNDROME [None]
  - SURGERY [None]
